FAERS Safety Report 4372152-3 (Version None)
Quarter: 2004Q2

REPORT INFORMATION
  Report Type: 
  Country: None (occurrence: None)
  Receive Date: 20040602
  Receipt Date: 20040513
  Transmission Date: 20050107
  Serious: Yes (Other)
  Sender: FDA-Public Use
  Company Number: 8006344

PATIENT
  Age: 73 Year
  Sex: Female

DRUGS (4)
  1. KEPPRA [Suspect]
     Indication: EPILEPSY
     Dosage: 500 MG 2/D PO
     Route: 048
     Dates: start: 20040401
  2. HEPTAMYL [Suspect]
     Indication: EPILEPSY
     Dosage: /D PO
     Route: 048
  3. DEPAKENE [Suspect]
     Indication: EPILEPSY
     Dosage: 1000 MG/ D PO
     Route: 048
  4. ASASANTIN [Suspect]
     Dosage: PO
     Route: 048

REACTIONS (9)
  - ALANINE AMINOTRANSFERASE INCREASED [None]
  - ASPARTATE AMINOTRANSFERASE INCREASED [None]
  - GAMMA-GLUTAMYLTRANSFERASE INCREASED [None]
  - HYPOTENSION [None]
  - JAUNDICE [None]
  - LIVER DISORDER [None]
  - PYREXIA [None]
  - SEPSIS [None]
  - WHITE BLOOD CELL COUNT INCREASED [None]
